FAERS Safety Report 9998771 (Version 1)
Quarter: 2014Q1

REPORT INFORMATION
  Report Type: Spontaneous
  Country: US (occurrence: US)
  Receive Date: 20140312
  Receipt Date: 20140312
  Transmission Date: 20141002
  Serious: No
  Sender: FDA-Public Use
  Company Number: US-BIOGENIDEC-2014BI019746

PATIENT
  Sex: Female

DRUGS (1)
  1. TECFIDERA [Suspect]
     Indication: MULTIPLE SCLEROSIS

REACTIONS (12)
  - Balance disorder [Not Recovered/Not Resolved]
  - Gait disturbance [Not Recovered/Not Resolved]
  - Fall [Not Recovered/Not Resolved]
  - Local swelling [Not Recovered/Not Resolved]
  - Coordination abnormal [Not Recovered/Not Resolved]
  - General physical health deterioration [Not Recovered/Not Resolved]
  - Eye operation [Unknown]
  - Loss of consciousness [Not Recovered/Not Resolved]
  - Head injury [Not Recovered/Not Resolved]
  - Mobility decreased [Not Recovered/Not Resolved]
  - Injection [Unknown]
  - Hypoaesthesia [Not Recovered/Not Resolved]
